FAERS Safety Report 4715855-0 (Version None)
Quarter: 2005Q3

REPORT INFORMATION
  Report Type: 
  Country: None (occurrence: None)
  Receive Date: 20050713
  Receipt Date: 20050706
  Transmission Date: 20060218
  Serious: Yes (Hospitalization)
  Sender: FDA-Public Use
  Company Number: 142549USA

PATIENT
  Age: 62 Year
  Sex: Male
  Weight: 111.5849 kg

DRUGS (13)
  1. CISPLATIN [Suspect]
     Indication: ADENOCARCINOMA PANCREAS
     Dosage: 18.75 MG/M2 INTRAVENOUS (NOS)
     Route: 042
     Dates: start: 20041004, end: 20041101
  2. CISPLATIN [Suspect]
     Indication: ADENOCARCINOMA PANCREAS
     Dosage: 14 MG/M2 INTRAVENOUS (NOS)
     Route: 042
  3. FLUOROURACIL [Suspect]
     Indication: ADENOCARCINOMA PANCREAS
     Dosage: 18.74 MG/M2 INTRAVNEOUS (NOS)
     Route: 042
     Dates: start: 20041004, end: 20041101
  4. FLUOROURACIL [Suspect]
     Indication: ADENOCARCINOMA PANCREAS
     Dosage: 98 MG/M2 INTRAVENOUS (NOS)
     Route: 042
  5. INTERFERON [Suspect]
     Indication: ADENOCARCINOMA PANCREAS
     Dosage: 2.25 MIU INTRAVENOUS (NOS)
     Route: 042
     Dates: start: 20041004, end: 20041105
  6. INTERFERON [Suspect]
     Indication: ADENOCARCINOMA PANCREAS
     Dosage: 1.7 MIU INTRAVENOUS (NOS)
     Route: 042
  7. METOPROLOL [Concomitant]
  8. FAMOTIDINE [Concomitant]
  9. COLACE [Concomitant]
  10. ACETAMINOPHEN [Concomitant]
  11. PROCHLORPERAZINE [Concomitant]
  12. LIPITOR [Concomitant]
  13. ENALAPRIL [Concomitant]

REACTIONS (7)
  - ARRHYTHMIA [None]
  - DEHYDRATION [None]
  - DIARRHOEA [None]
  - NAUSEA [None]
  - ORAL INTAKE REDUCED [None]
  - ORTHOSTATIC HYPOTENSION [None]
  - SYNCOPE [None]
